FAERS Safety Report 22077788 (Version 2)
Quarter: 2023Q1

REPORT INFORMATION
  Report Type: Spontaneous
  Country: US (occurrence: US)
  Receive Date: 20230309
  Receipt Date: 20230323
  Transmission Date: 20230417
  Serious: Yes (Other)
  Sender: FDA-Public Use
  Company Number: US-TEVA-2023-US-2862367

PATIENT
  Age: 36 Year
  Sex: Male

DRUGS (15)
  1. PREDNISONE [Suspect]
     Active Substance: PREDNISONE
     Indication: Acute graft versus host disease in skin
     Dosage: 50 MILLIGRAM DAILY;
     Route: 065
  2. PREDNISONE [Suspect]
     Active Substance: PREDNISONE
     Dosage: 60 MILLIGRAM DAILY;
     Route: 065
  3. PREDNISONE [Suspect]
     Active Substance: PREDNISONE
     Dosage: }1 MG/ KG/DAY
     Route: 065
  4. PREDNISONE [Suspect]
     Active Substance: PREDNISONE
     Dosage: 10 MILLIGRAM DAILY;
     Route: 065
  5. TACROLIMUS [Suspect]
     Active Substance: TACROLIMUS
     Indication: Acute graft versus host disease in skin
     Route: 065
  6. SIROLIMUS [Suspect]
     Active Substance: SIROLIMUS
     Indication: Acute graft versus host disease in skin
     Route: 065
  7. BRENTUXIMAB VEDOTIN [Concomitant]
     Active Substance: BRENTUXIMAB VEDOTIN
     Indication: Anaplastic large-cell lymphoma
     Route: 065
  8. RUXOLITINIB [Concomitant]
     Active Substance: RUXOLITINIB
     Indication: Acute graft versus host disease in skin
     Route: 065
  9. INFLIXIMAB [Concomitant]
     Active Substance: INFLIXIMAB
     Indication: Acute graft versus host disease in skin
     Route: 065
  10. BASILIXIMAB [Concomitant]
     Active Substance: BASILIXIMAB
     Indication: Acute graft versus host disease in skin
     Route: 065
  11. METHYLPREDNISOLONE [Concomitant]
     Active Substance: METHYLPREDNISOLONE
     Indication: Acute graft versus host disease in skin
     Dosage: 160 MILLIGRAM DAILY;
     Route: 065
  12. METHYLPREDNISOLONE [Concomitant]
     Active Substance: METHYLPREDNISOLONE
     Dosage: 120 MILLIGRAM DAILY;
     Route: 065
  13. METHYLPREDNISOLONE [Concomitant]
     Active Substance: METHYLPREDNISOLONE
     Dosage: 60 MILLIGRAM DAILY;
     Route: 065
  14. METHYLPREDNISOLONE [Concomitant]
     Active Substance: METHYLPREDNISOLONE
     Dosage: 30 MILLIGRAM DAILY;
     Route: 065
  15. METHYLPREDNISOLONE [Concomitant]
     Active Substance: METHYLPREDNISOLONE
     Dosage: 20 MILLIGRAM DAILY;
     Route: 065

REACTIONS (1)
  - Cytomegalovirus infection [Recovered/Resolved]
